FAERS Safety Report 19764832 (Version 2)
Quarter: 2022Q3

REPORT INFORMATION
  Report Type: Spontaneous
  Country: DE (occurrence: DE)
  Receive Date: 20210831
  Receipt Date: 20220809
  Transmission Date: 20221027
  Serious: Yes (Other)
  Sender: FDA-Public Use
  Company Number: DE-EMA-DD-20210811-KUMARVN_P-101444

PATIENT
  Age: 70 Year
  Sex: Female

DRUGS (1)
  1. ALENDRONIC ACID [Suspect]
     Active Substance: ALENDRONIC ACID
     Indication: Osteitis deformans
     Dosage: 70 MILLIGRAM, QW
     Route: 048
     Dates: start: 2014

REACTIONS (3)
  - Osteonecrosis of jaw [Recovered/Resolved]
  - Product use in unapproved indication [Unknown]
  - Loose tooth [Unknown]

NARRATIVE: CASE EVENT DATE: 20140101
